FAERS Safety Report 17958227 (Version 1)
Quarter: 2020Q2

REPORT INFORMATION
  Report Type: Report from Study
  Country: CA (occurrence: CA)
  Receive Date: 20200629
  Receipt Date: 20200629
  Transmission Date: 20200714
  Serious: Yes (Other)
  Sender: FDA-Public Use
  Company Number: CA-JNJFOC-20200103965

PATIENT
  Age: 56 Year
  Sex: Female
  Weight: 83.91 kg

DRUGS (2)
  1. REMICADE [Suspect]
     Active Substance: INFLIXIMAB
     Route: 042
  2. REMICADE [Suspect]
     Active Substance: INFLIXIMAB
     Indication: ANKYLOSING SPONDYLITIS
     Route: 042
     Dates: start: 20180216

REACTIONS (2)
  - Fungal infection [Recovering/Resolving]
  - Pulmonary artery stenosis [Unknown]

NARRATIVE: CASE EVENT DATE: 20191228
